FAERS Safety Report 7572055-7 (Version None)
Quarter: 2011Q2

REPORT INFORMATION
  Report Type: 
  Country: None (occurrence: None)
  Receive Date: 20110624
  Receipt Date: 20110622
  Transmission Date: 20111010
  Serious: Yes (Other)
  Sender: FDA-Public Use
  Company Number: CHPA2011US08359

PATIENT
  Age: 86 Year
  Sex: Female
  Weight: 45.351 kg

DRUGS (4)
  1. FERROUS SULFATE TAB [Suspect]
     Indication: ANAEMIA
  2. FERROUS SULFATE TAB [Suspect]
     Indication: MINERAL SUPPLEMENTATION
     Dosage: 2 DF, QD
     Route: 048
     Dates: end: 20110101
  3. PERDIEM [Concomitant]
     Indication: LAXATIVE SUPPORTIVE CARE
     Dosage: UNK, PRN
     Route: 048
  4. NEXIUM [Concomitant]
     Indication: GASTROOESOPHAGEAL REFLUX DISEASE

REACTIONS (5)
  - NEOPLASM MALIGNANT [None]
  - DRUG INEFFECTIVE [None]
  - SURGERY [None]
  - WEIGHT DECREASED [None]
  - OVERDOSE [None]
